FAERS Safety Report 13372809 (Version 1)
Quarter: 2017Q1

REPORT INFORMATION
  Report Type: Spontaneous
  Country: US (occurrence: US)
  Receive Date: 20170326
  Receipt Date: 20170326
  Transmission Date: 20170429
  Serious: Yes (Other)
  Sender: FDA-Public Use
  Company Number: None

PATIENT
  Age: 48 Year
  Sex: Female
  Weight: 69.75 kg

DRUGS (3)
  1. LO OVRAL [Concomitant]
  2. LOW DOSE ASPIRIN [Concomitant]
     Active Substance: ASPIRIN
  3. MYRBETRIQ [Suspect]
     Active Substance: MIRABEGRON
     Indication: HYPERTONIC BLADDER
     Dosage: ?          QUANTITY:1 TABLET(S);?
     Route: 048
     Dates: start: 20161214, end: 20170205

REACTIONS (6)
  - Back pain [None]
  - Drug effect decreased [None]
  - Heart rate irregular [None]
  - Therapeutic response unexpected [None]
  - Constipation [None]
  - Dyspepsia [None]

NARRATIVE: CASE EVENT DATE: 20170205
